FAERS Safety Report 4445512-X (Version None)
Quarter: 2004Q3

REPORT INFORMATION
  Report Type: 
  Country: None (occurrence: None)
  Receive Date: 20040804
  Receipt Date: 20040401
  Transmission Date: 20050211
  Serious: Yes (Hospitalization)
  Sender: FDA-Public Use
  Company Number: 2004-114644-NL

PATIENT
  Age: 82 Year
  Sex: Female
  Weight: 50.9 kg

DRUGS (1)
  1. REMERON [Suspect]
     Indication: DEPRESSION
     Dosage: 15 MG QD ORAL   (DURATION: A FEW YEARS)
     Route: 048
     Dates: end: 20031101

REACTIONS (1)
  - LOSS OF CONSCIOUSNESS [None]
